FAERS Safety Report 15832210 (Version 1)
Quarter: 2018Q4

REPORT INFORMATION
  Report Type: Spontaneous
  Country: US (occurrence: US)
  Receive Date: 20181219
  Receipt Date: 20181219
  Transmission Date: 20190205
  Serious: No
  Sender: FDA-Public Use
  Company Number: None

PATIENT
  Age: 67 Year
  Sex: Male
  Weight: 98.4 kg

DRUGS (1)
  1. INFLIXIMAB-ABDA [Suspect]
     Active Substance: INFLIXIMAB-ABDA
     Indication: COLITIS ULCERATIVE
     Route: 042
     Dates: start: 20181023, end: 20181023

REACTIONS (5)
  - Drug hypersensitivity [None]
  - Pruritus [None]
  - Rash erythematous [None]
  - Dermatitis [None]
  - Urticaria [None]

NARRATIVE: CASE EVENT DATE: 20181102
